FAERS Safety Report 7101342-1 (Version None)
Quarter: 2010Q4

REPORT INFORMATION
  Report Type: 
  Country: None (occurrence: None)
  Receive Date: 20101108
  Receipt Date: 20101027
  Transmission Date: 20110411
  Serious: Yes (Hospitalization)
  Sender: FDA-Public Use
  Company Number: 021181

PATIENT
  Sex: Female

DRUGS (6)
  1. KEPPRA [Suspect]
     Indication: OFF LABEL USE
     Dosage: 250 MG BID ORAL
     Route: 048
     Dates: start: 20100928, end: 20100930
  2. KEPPRA [Suspect]
     Indication: PAIN
     Dosage: 250 MG BID ORAL
     Route: 048
     Dates: start: 20100928, end: 20100930
  3. AUGMENTIN '250' [Suspect]
     Indication: BRONCHITIS
     Dosage: 3 G QD ORAL
     Route: 048
     Dates: start: 20100926, end: 20101003
  4. SKENAN [Suspect]
     Indication: PAIN
     Dosage: 30 MG BID ORAL
     Route: 048
     Dates: start: 20100926, end: 20101002
  5. FOSAVANCE (NOT SPECIFIED) [Suspect]
     Indication: OSTEOPOROSIS
     Dosage: 1 UNIT WEEKLY ORAL
     Route: 048
     Dates: end: 20100924
  6. AMLODIPINE [Concomitant]

REACTIONS (3)
  - OFF LABEL USE [None]
  - PRURITUS [None]
  - RASH [None]
